FAERS Safety Report 25263588 (Version 1)
Quarter: 2025Q2

REPORT INFORMATION
  Report Type: Spontaneous
  Country: TW (occurrence: TW)
  Receive Date: 20250502
  Receipt Date: 20250502
  Transmission Date: 20250717
  Serious: Yes (Life-Threatening, Hospitalization, Other)
  Sender: EMD SERONO INC
  Company Number: TW-Merck Healthcare KGaA-2025021619

PATIENT
  Age: 52 Year
  Sex: Male
  Weight: 84 kg

DRUGS (4)
  1. GLUCOPHAGE [Suspect]
     Active Substance: METFORMIN HYDROCHLORIDE
     Indication: Diabetes mellitus
  2. DAPAGLIFLOZIN [Suspect]
     Active Substance: DAPAGLIFLOZIN
     Indication: Diabetes mellitus
  3. CRESTOR [Concomitant]
     Active Substance: ROSUVASTATIN CALCIUM
     Indication: Hyperlipidaemia
  4. COZAAR [Concomitant]
     Active Substance: LOSARTAN POTASSIUM
     Indication: Hypertension
     Dates: start: 20250110

REACTIONS (10)
  - Respiratory failure [Unknown]
  - Pancreatitis acute [Unknown]
  - Septic shock [Unknown]
  - Euglycaemic diabetic ketoacidosis [Recovered/Resolved]
  - Hepatic cirrhosis [Unknown]
  - Aortic arteriosclerosis [Unknown]
  - Acute kidney injury [Unknown]
  - Lactic acidosis [Recovered/Resolved]
  - Cholelithiasis [Unknown]
  - Contraindicated product administered [Unknown]

NARRATIVE: CASE EVENT DATE: 20250405
